FAERS Safety Report 11074889 (Version 2)
Quarter: 2015Q4

REPORT INFORMATION
  Report Type: Spontaneous
  Country: IT (occurrence: IT)
  Receive Date: 20150429
  Receipt Date: 20151016
  Transmission Date: 20160304
  Serious: Yes (Disabling)
  Sender: FDA-Public Use
  Company Number: IT-SUN PHARMACEUTICAL INDUSTRIES LTD-2015RR-96368

PATIENT

DRUGS (2)
  1. ALENDRONIC ACID [Suspect]
     Active Substance: ALENDRONIC ACID
     Indication: METASTASES TO BONE
     Dosage: 70 MG, WEEKLY
     Route: 048
     Dates: start: 19900501, end: 20090501
  2. DIBASE [Concomitant]
     Active Substance: CHOLECALCIFEROL
     Indication: VITAMIN D DEFICIENCY
     Dosage: 6 VIALS 1 ML
     Route: 048

REACTIONS (3)
  - Fistula [Unknown]
  - Swelling [Unknown]
  - Pain in jaw [Unknown]

NARRATIVE: CASE EVENT DATE: 20131201
